FAERS Safety Report 21546947 (Version 1)
Quarter: 2022Q4

REPORT INFORMATION
  Report Type: Spontaneous
  Country: US (occurrence: None)
  Receive Date: 20221101
  Receipt Date: 20221101
  Transmission Date: 20230113
  Serious: Yes (Hospitalization, Other)
  Sender: FDA-Public Use
  Company Number: None

PATIENT
  Sex: Female
  Weight: 81.65 kg

DRUGS (1)
  1. HYDROXYCHLOROQUINE [Suspect]
     Active Substance: HYDROXYCHLOROQUINE
     Indication: Systemic lupus erythematosus
     Dosage: FREQUENCY : DAILY;?
     Dates: start: 2016

REACTIONS (7)
  - Product substitution issue [None]
  - Systemic lupus erythematosus [None]
  - Pleurisy [None]
  - Arthralgia [None]
  - Palpitations [None]
  - Fatigue [None]
  - Pericarditis [None]

NARRATIVE: CASE EVENT DATE: 20160101
